FAERS Safety Report 11907770 (Version 1)
Quarter: 2016Q1

REPORT INFORMATION
  Report Type: Report from Study
  Country: US (occurrence: US)
  Receive Date: 20160111
  Receipt Date: 20160111
  Transmission Date: 20160526
  Serious: Yes (Hospitalization, Other)
  Sender: FDA-Public Use
  Company Number: US-ABBVIE-16K-163-1532791-00

PATIENT
  Age: 62 Year
  Sex: Male
  Weight: 83.08 kg

DRUGS (8)
  1. METHOTREXATE [Suspect]
     Active Substance: METHOTREXATE
     Indication: RHEUMATOID ARTHRITIS
     Route: 065
  2. SIMCOR [Concomitant]
     Active Substance: NIACIN\SIMVASTATIN
     Indication: HYPERLIPIDAEMIA
  3. MELOXICAM. [Concomitant]
     Active Substance: MELOXICAM
     Indication: BLOOD TESTOSTERONE DECREASED
  4. ALFUZOSIN [Concomitant]
     Active Substance: ALFUZOSIN
     Indication: PROSTATOMEGALY
  5. FOLIC ACID. [Concomitant]
     Active Substance: FOLIC ACID
     Indication: VITAMIN SUPPLEMENTATION
  6. TESTIM [Concomitant]
     Active Substance: TESTOSTERONE
     Indication: BLOOD TESTOSTERONE DECREASED
  7. OMEPRAZOLE. [Concomitant]
     Active Substance: OMEPRAZOLE
     Indication: BLOOD TESTOSTERONE DECREASED
  8. HUMIRA [Suspect]
     Active Substance: ADALIMUMAB
     Indication: RHEUMATOID ARTHRITIS
     Route: 058
     Dates: start: 201407, end: 201512

REACTIONS (8)
  - Muscle rupture [Not Recovered/Not Resolved]
  - Muscle rupture [Recovered/Resolved]
  - Rheumatoid arthritis [Unknown]
  - Appendicitis [Recovered/Resolved]
  - Urinary retention [Recovered/Resolved]
  - Ligament rupture [Not Recovered/Not Resolved]
  - Ligament rupture [Recovered/Resolved]
  - Infection [Recovered/Resolved]

NARRATIVE: CASE EVENT DATE: 2015
